FAERS Safety Report 7489919-5 (Version None)
Quarter: 2011Q2

REPORT INFORMATION
  Report Type: 
  Country: None (occurrence: None)
  Receive Date: 20110512
  Receipt Date: 20110427
  Transmission Date: 20111010
  Serious: Yes (Hospitalization, Other)
  Sender: FDA-Public Use
  Company Number: 030721

PATIENT
  Sex: Female
  Weight: 48 kg

DRUGS (16)
  1. HYDROCHLOROTHIAZIDE [Concomitant]
  2. CEFTIZOXIME [Concomitant]
  3. LEVOFLOXACIN [Concomitant]
  4. VALACICLOVIR [Concomitant]
  5. METHOTREXATE [Concomitant]
  6. FOLIC ACID [Concomitant]
  7. REBAMIPIDE [Concomitant]
  8. NABUMETONE [Concomitant]
  9. ERDOSTEINE [Concomitant]
  10. CIMZIA [Suspect]
     Indication: RHEUMATOID ARTHRITIS
     Dosage: (200 MG 1X/2 WEEKS, NO OF DOSES RECEIVED:13 SUBCUTANEOUS)
     Route: 058
     Dates: start: 20101014, end: 20110331
  11. CLARITHROMYCIN [Concomitant]
  12. RANITIDINE [Concomitant]
  13. MEROPENEM [Concomitant]
  14. TRIAMCINOLON /00031901/ [Concomitant]
  15. ESCAROL /01578503/ [Concomitant]
  16. COUGH SYRUP [Concomitant]

REACTIONS (3)
  - ATELECTASIS [None]
  - PNEUMONIA [None]
  - PULMONARY TUBERCULOSIS [None]
